FAERS Safety Report 17264229 (Version 2)
Quarter: 2020Q1

REPORT INFORMATION
  Report Type: Spontaneous
  Country: JP (occurrence: JP)
  Receive Date: 20200113
  Receipt Date: 20200117
  Transmission Date: 20200409
  Serious: Yes (Death, Other)
  Sender: FDA-Public Use
  Company Number: JP-JAZZ-2019-JP-016663

PATIENT
  Age: 58 Year
  Sex: Male

DRUGS (1)
  1. DEFITELIO [Suspect]
     Active Substance: DEFIBROTIDE SODIUM
     Indication: PRODUCT USED FOR UNKNOWN INDICATION
     Dosage: 25 MG/KG (1600 MG/24 HOURS)
     Route: 042
     Dates: start: 20191120, end: 20200108

REACTIONS (5)
  - Venoocclusive liver disease [Fatal]
  - Pollakiuria [Recovering/Resolving]
  - Respiratory failure [Fatal]
  - Pulmonary haemorrhage [Fatal]
  - Hepatic failure [Fatal]

NARRATIVE: CASE EVENT DATE: 201911
